FAERS Safety Report 6612158-4 (Version None)
Quarter: 2010Q1

REPORT INFORMATION
  Report Type: 
  Country: None (occurrence: None)
  Receive Date: 20100303
  Receipt Date: 20100224
  Transmission Date: 20100710
  Serious: Yes (Death)
  Sender: FDA-Public Use
  Company Number: CA-GENENTECH-298560

PATIENT
  Sex: Female

DRUGS (1)
  1. RITUXAN [Suspect]
     Indication: POLYMYOSITIS
     Dosage: 1000 MG, Q15D
     Route: 042
     Dates: start: 20100106, end: 20100208

REACTIONS (2)
  - PNEUMONIA [None]
  - SEPSIS [None]
